FAERS Safety Report 10494234 (Version 1)
Quarter: 2014Q4

REPORT INFORMATION
  Report Type: Spontaneous
  Country: US (occurrence: None)
  Receive Date: 20141002
  Receipt Date: 20141002
  Transmission Date: 20150528
  Serious: Yes (Life-Threatening)
  Sender: FDA-Public Use
  Company Number: None

PATIENT
  Age: 20 Year
  Sex: Female
  Weight: 74.84 kg

DRUGS (1)
  1. CITALOPRAM [Suspect]
     Active Substance: CITALOPRAM HYDROBROMIDE
     Indication: DEPRESSION
     Dosage: 1 PILL ONCE DAILY TAKEN BY MOUTH
     Route: 048
     Dates: start: 20140701, end: 20141001

REACTIONS (7)
  - Feeling abnormal [None]
  - Burning sensation [None]
  - Heart rate irregular [None]
  - Dyspnoea [None]
  - Influenza like illness [None]
  - Cold sweat [None]
  - Blood pressure fluctuation [None]

NARRATIVE: CASE EVENT DATE: 20140928
